FAERS Safety Report 4396597-0 (Version None)
Quarter: 2004Q3

REPORT INFORMATION
  Report Type: 
  Country: None (occurrence: None)
  Receive Date: 20040713
  Receipt Date: 20040713
  Transmission Date: 20050211
  Serious: Yes (Other)
  Sender: FDA-Public Use
  Company Number: None

PATIENT
  Age: 55 Year
  Sex: Male

DRUGS (1)
  1. ANTI-THYMOCYTE GLOBULIN [Suspect]
     Dosage: 185 G /  X 1 / IV
     Route: 042
     Dates: start: 20040627

REACTIONS (3)
  - BLOOD PRESSURE DECREASED [None]
  - CHILLS [None]
  - OXYGEN SATURATION DECREASED [None]
